FAERS Safety Report 5677384-X (Version None)
Quarter: 2008Q1

REPORT INFORMATION
  Report Type: 
  Country: None (occurrence: None)
  Receive Date: 20080320
  Receipt Date: 20080320
  Transmission Date: 20080703
  Serious: No
  Sender: FDA-Public Use
  Company Number: None

PATIENT
  Age: 29 Year
  Sex: Male
  Weight: 117.9352 kg

DRUGS (1)
  1. CREST PRO HEALTH MOUTHWASH [Suspect]
     Dosage: CAPFUL DAILY
     Dates: start: 20080215, end: 20080315

REACTIONS (1)
  - TOOTH DISCOLOURATION [None]
